FAERS Safety Report 7983566-4 (Version None)
Quarter: 2011Q4

REPORT INFORMATION
  Report Type: 
  Country: None (occurrence: None)
  Receive Date: 20111215
  Receipt Date: 20111206
  Transmission Date: 20120403
  Serious: Yes (Other)
  Sender: FDA-Public Use
  Company Number: PHHY2011CA108558

PATIENT
  Sex: Female

DRUGS (1)
  1. PAMIDRONATE DISODIUM [Suspect]
     Indication: MULTIPLE MYELOMA
     Dosage: 90 MG, TIW
     Dates: start: 19970101, end: 20070101

REACTIONS (6)
  - HIP FRACTURE [None]
  - PELVIC PAIN [None]
  - FRACTURE [None]
  - BONE LESION [None]
  - BONE DISORDER [None]
  - MUSCULOSKELETAL CHEST PAIN [None]
